FAERS Safety Report 4919550-4 (Version None)
Quarter: 2006Q1

REPORT INFORMATION
  Report Type: 
  Country: None (occurrence: None)
  Receive Date: 20060222
  Receipt Date: 20060208
  Transmission Date: 20060701
  Serious: Yes (Hospitalization, Other)
  Sender: FDA-Public Use
  Company Number: NO-MERCK-0602NOR00010

PATIENT
  Age: 61 Year
  Sex: Male

DRUGS (8)
  1. VIOXX [Suspect]
     Indication: RHEUMATOID ARTHRITIS
     Route: 048
     Dates: start: 20010406, end: 20031104
  2. VIOXX [Suspect]
     Route: 048
     Dates: start: 20040101, end: 20041001
  3. PREDNISOLONE [Concomitant]
     Indication: RHEUMATOID ARTHRITIS
     Route: 048
     Dates: start: 20000401
  4. METHOTREXATE [Concomitant]
     Indication: RHEUMATOID ARTHRITIS
     Route: 048
     Dates: start: 20000801
  5. CELECOXIB [Concomitant]
     Indication: RHEUMATOID ARTHRITIS
     Route: 048
     Dates: start: 20001201, end: 20010401
  6. PIROXICAM BETADEX [Concomitant]
     Indication: RHEUMATOID ARTHRITIS
     Route: 065
  7. NABUMETONE [Concomitant]
     Indication: RHEUMATOID ARTHRITIS
     Route: 065
  8. CIMETIDINE [Concomitant]
     Indication: DYSPEPSIA
     Route: 065

REACTIONS (6)
  - ANGINA PECTORIS [None]
  - BREAST PAIN [None]
  - CARDIAC ARREST [None]
  - CORONARY ARTERY DISEASE [None]
  - MYOCARDIAL INFARCTION [None]
  - ULCER HAEMORRHAGE [None]
